FAERS Safety Report 7930472 (Version 5)
Quarter: 2012Q4

REPORT INFORMATION
  Report Type: 
  Country: US (occurrence: US)
  Receive Date: 20110504
  Receipt Date: 20121220
  Transmission Date: 20130627
  Serious: Yes (Hospitalization)
  Sender: FDA-Public Use
  Company Number: US-ACTELION-A-US2011-47879

PATIENT
  Age: 54 Year
  Sex: Female

DRUGS (9)
  1. VELETRI [Suspect]
     Indication: PULMONARY ARTERIAL HYPERTENSION
     Dosage: 19 ng/kg, per min
     Route: 042
     Dates: start: 20110124, end: 20110414
  2. VELETRI [Suspect]
     Dosage: 15 ng/kg, per min
     Route: 042
     Dates: start: 20110420
  3. VELETRI [Suspect]
     Dosage: 23 ng/kg, per min
     Route: 042
  4. VELETRI [Suspect]
     Dosage: 37 ng/kg, per min
     Route: 042
  5. TRACLEER [Suspect]
     Indication: PULMONARY ARTERIAL HYPERTENSION
     Dosage: 125 mg, bid
     Route: 048
     Dates: start: 2006
  6. TRACLEER [Suspect]
     Dosage: 62.5 mg, bid
     Route: 048
  7. TRACLEER [Suspect]
     Dosage: UNK
     Route: 048
     Dates: start: 20020115
  8. SILDENAFIL [Concomitant]
  9. ADCIRCA [Concomitant]

REACTIONS (6)
  - Food poisoning [Unknown]
  - Nausea [Recovering/Resolving]
  - Blood potassium decreased [Unknown]
  - Diarrhoea [Unknown]
  - Flushing [Unknown]
  - Vomiting [Unknown]
